FAERS Safety Report 17956400 (Version 1)
Quarter: 2020Q2

REPORT INFORMATION
  Report Type: Spontaneous
  Country: FR (occurrence: FR)
  Receive Date: 20200629
  Receipt Date: 20200629
  Transmission Date: 20200714
  Serious: Yes (Life-Threatening, Other)
  Sender: FDA-Public Use
  Company Number: FR-ACCORD-062229

PATIENT
  Age: 8 Year
  Sex: Male

DRUGS (6)
  1. BEVACIZUMAB. [Suspect]
     Active Substance: BEVACIZUMAB
     Indication: ATYPICAL TERATOID/RHABDOID TUMOUR OF CNS
     Dosage: DAYS 1,15
     Route: 042
     Dates: start: 201604
  2. ETOPOSIDE. [Suspect]
     Active Substance: ETOPOSIDE
     Indication: ATYPICAL TERATOID/RHABDOID TUMOUR OF CNS
  3. BEVACIZUMAB. [Suspect]
     Active Substance: BEVACIZUMAB
     Indication: ATYPICAL TERATOID/RHABDOID TUMOUR OF CNS
     Dosage: DAYS 1,15
     Route: 042
     Dates: start: 201604
  4. CYTARABINE/CYTARABINE HYDROCHLORIDE/CYTARABINE OCFOSFATE [Suspect]
     Active Substance: CYTARABINE
     Indication: ATYPICAL TERATOID/RHABDOID TUMOUR OF CNS
     Dosage: LIPOSOMAL CYTARABINE 35 MG INTRATHECAL DAY 1
     Route: 037
     Dates: start: 201604
  5. CYCLOPHOSPHAMIDE/CYCLOPHOSPHAMIDE MONOHYDRATE [Suspect]
     Active Substance: CYCLOPHOSPHAMIDE
     Indication: ATYPICAL TERATOID/RHABDOID TUMOUR OF CNS
     Dosage: ALTERNATING 21 DAY CYCLES
     Route: 048
     Dates: start: 201604
  6. CELECOXIB. [Suspect]
     Active Substance: CELECOXIB
     Indication: ATYPICAL TERATOID/RHABDOID TUMOUR OF CNS
     Dosage: CONTINUOUS FREQUENCY
     Route: 048
     Dates: start: 201604

REACTIONS (6)
  - Neutropenia [Recovered/Resolved]
  - Asthenia [Unknown]
  - Off label use [Unknown]
  - Toxicity to various agents [Unknown]
  - Influenza [Unknown]
  - Injection site reaction [Unknown]
